FAERS Safety Report 15867360 (Version 2)
Quarter: 2019Q1

REPORT INFORMATION
  Report Type: Spontaneous
  Country: HR (occurrence: HR)
  Receive Date: 20190125
  Receipt Date: 20190131
  Transmission Date: 20190417
  Serious: Yes (Hospitalization, Other)
  Sender: FDA-Public Use
  Company Number: HR-JNJFOC-20110904470

PATIENT
  Age: 31 Year
  Sex: Female

DRUGS (38)
  1. GABAPENTIN. [Suspect]
     Active Substance: GABAPENTIN
     Indication: MENTAL DISORDER
     Dosage: 300 MG, UNK
     Route: 065
     Dates: start: 200904
  2. GINKGO BILOBA [Suspect]
     Active Substance: GINKGO
     Indication: PAIN
     Dosage: 120 MG, UNK
     Route: 065
     Dates: start: 201003
  3. OXYCODONE [Suspect]
     Active Substance: OXYCODONE
     Indication: PAIN
     Dosage: 13 MG, UNK
     Route: 065
     Dates: start: 201003
  4. ESOMEPRAZOLE. [Suspect]
     Active Substance: ESOMEPRAZOLE MAGNESIUM
     Indication: ASTHENIA
     Dosage: 20 MG, 1/DAY
     Route: 065
     Dates: start: 201003
  5. OXYCODONE [Concomitant]
     Active Substance: OXYCODONE
     Indication: PRODUCT USED FOR UNKNOWN INDICATION
     Dosage: UNK
     Route: 065
  6. DIAZEPAM. [Suspect]
     Active Substance: DIAZEPAM
     Indication: PAIN
     Dosage: 5 MG, 1/DAY
     Route: 065
     Dates: start: 200709
  7. NEUROBION FORTE                    /00358301/ [Concomitant]
     Indication: PRODUCT USED FOR UNKNOWN INDICATION
     Dosage: UNK
     Route: 065
  8. IBUPROFEN. [Suspect]
     Active Substance: IBUPROFEN
     Indication: PAIN
     Dosage: 400 MG, UNK
     Route: 065
     Dates: start: 200703
  9. RANITIDINE. [Suspect]
     Active Substance: RANITIDINE
     Indication: PRODUCT USED FOR UNKNOWN INDICATION
     Dosage: UNK
     Route: 065
     Dates: start: 200709
  10. GABAPENTINE [Concomitant]
     Active Substance: GABAPENTIN
     Indication: PRODUCT USED FOR UNKNOWN INDICATION
     Dosage: UNK
     Route: 065
  11. BUPRENORPHINE. [Concomitant]
     Active Substance: BUPRENORPHINE
     Indication: PRODUCT USED FOR UNKNOWN INDICATION
     Dosage: UNK
     Route: 065
  12. PREGABALIN. [Concomitant]
     Active Substance: PREGABALIN
     Indication: PRODUCT USED FOR UNKNOWN INDICATION
     Dosage: UNK
     Route: 065
  13. SERTRALINE [Concomitant]
     Active Substance: SERTRALINE HYDROCHLORIDE
     Indication: PRODUCT USED FOR UNKNOWN INDICATION
     Dosage: UNK
     Route: 065
  14. PREGABALIN. [Suspect]
     Active Substance: PREGABALIN
     Indication: PAIN
     Dosage: 300 MG, 1/DAY
     Route: 065
     Dates: start: 201003
  15. PANTOPRAZOLE [Suspect]
     Active Substance: PANTOPRAZOLE
     Indication: PRODUCT USED FOR UNKNOWN INDICATION
     Dosage: 20 MG, UNK
     Route: 065
     Dates: start: 200904
  16. DIAZEPAM. [Concomitant]
     Active Substance: DIAZEPAM
     Indication: PRODUCT USED FOR UNKNOWN INDICATION
     Dosage: UNK
     Route: 065
  17. ESOMEPRAZOLE. [Concomitant]
     Active Substance: ESOMEPRAZOLE MAGNESIUM
     Indication: PRODUCT USED FOR UNKNOWN INDICATION
     Dosage: UNK
     Route: 065
  18. BUPRENORPHINE. [Suspect]
     Active Substance: BUPRENORPHINE
     Indication: BRADYPHRENIA
     Dosage: 70 MG, UNK
     Route: 065
     Dates: start: 200904
  19. BACLOFEN. [Suspect]
     Active Substance: BACLOFEN
     Dosage: 25 MG, 1/DAY
     Route: 065
     Dates: start: 200805
  20. SERTRALINE HYDROCHLORIDE. [Suspect]
     Active Substance: SERTRALINE HYDROCHLORIDE
     Indication: PAIN
     Dosage: 50 MG, 1/DAY
     Route: 065
     Dates: start: 200904
  21. LEVOTHYROXINE. [Suspect]
     Active Substance: LEVOTHYROXINE
     Indication: QUADRIPARESIS
     Dosage: 50 MCG, UNK
     Route: 065
  22. CARBAMAZEPINE. [Concomitant]
     Active Substance: CARBAMAZEPINE
     Indication: PRODUCT USED FOR UNKNOWN INDICATION
     Dosage: UNK
     Route: 065
  23. ALPRAZOLAM. [Concomitant]
     Active Substance: ALPRAZOLAM
     Indication: PERSISTENT DEPRESSIVE DISORDER
     Dosage: UNK
     Route: 065
     Dates: start: 200805
  24. SERTRALINE [Suspect]
     Active Substance: SERTRALINE HYDROCHLORIDE
     Indication: HEADACHE
     Dosage: 1 DF, 1/DAY
     Route: 065
     Dates: start: 200805
  25. NEUROBION FORTE [Suspect]
     Active Substance: CYANOCOBALAMIN\PYRIDOXINE HYDROCHLORIDE\THIAMINE DISULFIDE
     Indication: PAIN
     Dosage: 2 DF, UNK
     Route: 065
     Dates: start: 200805
  26. PIROXICAM. [Suspect]
     Active Substance: PIROXICAM
     Indication: PAIN
     Dosage: 20 MG, UNK
     Route: 065
     Dates: start: 200709
  27. FEXOFENADINE HYDROCHLORIDE. [Suspect]
     Active Substance: FEXOFENADINE HYDROCHLORIDE
     Indication: HEADACHE
     Dosage: 180 MG, UNK
     Route: 065
     Dates: start: 201003
  28. LEVOTHYROXINE SODIUM. [Suspect]
     Active Substance: LEVOTHYROXINE SODIUM
     Indication: PAIN
     Dosage: 50 MCG, UNK
     Route: 065
     Dates: start: 200703
  29. SERTRALINE [Suspect]
     Active Substance: SERTRALINE HYDROCHLORIDE
     Dosage: 50 MG, 1/DAY
     Route: 065
     Dates: start: 200904
  30. DIAZEPAM. [Suspect]
     Active Substance: DIAZEPAM
     Dosage: 1 DF, 1/DAY
     Route: 065
     Dates: start: 201003
  31. FENTANYL. [Suspect]
     Active Substance: FENTANYL
     Indication: PAIN
     Dosage: 100 MG, UNK
     Route: 062
     Dates: start: 201003
  32. LEVOTHYROXINE SODIUM. [Suspect]
     Active Substance: LEVOTHYROXINE SODIUM
     Dosage: 75 MCG, UNK
     Route: 065
     Dates: start: 200703
  33. OXYCODONE [Suspect]
     Active Substance: OXYCODONE
     Dosage: 10 MG, 1/DAY
     Route: 065
     Dates: start: 200904
  34. BACLOFEN. [Suspect]
     Active Substance: BACLOFEN
     Indication: PAIN
     Dosage: 10 MG, 1/DAY
     Route: 065
     Dates: start: 200709
  35. TRAMADOL HYDROCHLORIDE/PARACETAMOL STADA [Suspect]
     Active Substance: ACETAMINOPHEN\TRAMADOL HYDROCHLORIDE
     Dosage: 2 DF, 1/DAY
     Route: 065
     Dates: start: 200709
  36. CARBAMAZEPINE. [Suspect]
     Active Substance: CARBAMAZEPINE
     Indication: PAIN
     Dosage: 200 MG, 1/DAY
     Route: 065
     Dates: start: 200709
  37. TRAMADOL. [Concomitant]
     Active Substance: TRAMADOL
     Indication: PAIN
     Dosage: 37.5 MG, UNK
     Route: 065
  38. BACLOFEN. [Concomitant]
     Active Substance: BACLOFEN
     Indication: PRODUCT USED FOR UNKNOWN INDICATION
     Dosage: UNK
     Route: 065

REACTIONS (33)
  - Diplopia [Unknown]
  - Condition aggravated [Unknown]
  - Disturbance in attention [Unknown]
  - Vomiting [Unknown]
  - Drug ineffective [Unknown]
  - Psychomotor skills impaired [Unknown]
  - Nausea [Unknown]
  - Pain [Unknown]
  - Dizziness [Unknown]
  - Sensory disturbance [Unknown]
  - Pruritus [Unknown]
  - Schizophrenia [Unknown]
  - Feeling abnormal [Unknown]
  - Oedema [Unknown]
  - Loss of consciousness [Unknown]
  - Anxiety [Unknown]
  - Persistent depressive disorder [Unknown]
  - Quadriparesis [Unknown]
  - Cognitive disorder [Unknown]
  - Gastrointestinal motility disorder [Unknown]
  - Sedation [Unknown]
  - Constipation [Unknown]
  - Depression [Unknown]
  - Drug interaction [Unknown]
  - Neurosis [Unknown]
  - Musculoskeletal stiffness [Unknown]
  - Euphoric mood [Unknown]
  - Confusional state [Unknown]
  - Fatigue [Unknown]
  - Asthenia [Unknown]
  - Syncope [Unknown]
  - Erythema [Unknown]
  - Headache [Unknown]
